FAERS Safety Report 17492422 (Version 1)
Quarter: 2020Q1

REPORT INFORMATION
  Report Type: Spontaneous
  Country: US (occurrence: US)
  Receive Date: 20200304
  Receipt Date: 20200304
  Transmission Date: 20200409
  Serious: Yes (Death, Hospitalization)
  Sender: FDA-Public Use
  Company Number: US-TEVA-2020-US-1193591

PATIENT
  Age: 63 Year
  Sex: Male

DRUGS (2)
  1. PREGABALIN. [Suspect]
     Active Substance: PREGABALIN
     Indication: SEIZURE
     Route: 048
  2. TOPIRAMATE. [Suspect]
     Active Substance: TOPIRAMATE
     Indication: SEIZURE
     Route: 048

REACTIONS (8)
  - Myoclonus [Unknown]
  - Intentional overdose [Fatal]
  - Cardiac arrest [Unknown]
  - Unresponsive to stimuli [Not Recovered/Not Resolved]
  - Toxicity to various agents [Fatal]
  - Intentional product misuse [Fatal]
  - Bundle branch block right [Unknown]
  - Hypothermia [Not Recovered/Not Resolved]
